FAERS Safety Report 5135519-1 (Version None)
Quarter: 2006Q4

REPORT INFORMATION
  Report Type: 
  Country: None (occurrence: None)
  Receive Date: 20061026
  Receipt Date: 20061011
  Transmission Date: 20070319
  Serious: Yes (Death, Other)
  Sender: FDA-Public Use
  Company Number: CA-ELI_LILLY_AND_COMPANY-CA200610002086

PATIENT
  Age: 35 Year
  Sex: Male

DRUGS (2)
  1. ZYPREXA [Suspect]
     Dosage: UNK, UNK
     Dates: end: 20050101
  2. ZYPREXA [Suspect]
     Dosage: 840 MG, UNK
     Route: 048
     Dates: start: 20050101

REACTIONS (9)
  - COMPLETED SUICIDE [None]
  - DRUG TOXICITY [None]
  - HALLUCINATION, AUDITORY [None]
  - HYPOTENSION [None]
  - OVERDOSE [None]
  - POOR QUALITY SLEEP [None]
  - PULMONARY CONGESTION [None]
  - PULMONARY OEDEMA [None]
  - RESPIRATORY DEPRESSION [None]
